FAERS Safety Report 11008588 (Version 1)
Quarter: 2015Q2

REPORT INFORMATION
  Report Type: Spontaneous
  Country: US (occurrence: None)
  Receive Date: 20150408
  Receipt Date: 20150408
  Transmission Date: 20150821
  Serious: No
  Sender: FDA-Public Use
  Company Number: 15AE017

PATIENT
  Age: 11 Month
  Sex: Male

DRUGS (1)
  1. CVS PHARMACY IBUPROFEN [Suspect]
     Active Substance: IBUPROFEN

REACTIONS (3)
  - Failure of child resistant mechanism for pharmaceutical product [None]
  - Accidental exposure to product by child [None]
  - Vomiting [None]

NARRATIVE: CASE EVENT DATE: 20150325
